FAERS Safety Report 12760103 (Version 2)
Quarter: 2023Q1

REPORT INFORMATION
  Report Type: Report from Study
  Country: IT (occurrence: IT)
  Receive Date: 20160919
  Receipt Date: 20230327
  Transmission Date: 20230418
  Serious: Yes (Hospitalization)
  Sender: FDA-Public Use
  Company Number: IT-JNJFOC-20160913450

PATIENT
  Age: 61 Year
  Sex: Female
  Weight: 36.2 kg

DRUGS (5)
  1. TRABECTEDIN [Suspect]
     Active Substance: TRABECTEDIN
     Indication: Leiomyosarcoma
     Dosage: 1.30 (INTENDED AND ADMINISTERED DOSE 1.30; UNITS NOT REPORTED)
     Route: 042
     Dates: start: 20141204
  2. TRABECTEDIN [Suspect]
     Active Substance: TRABECTEDIN
     Route: 042
     Dates: start: 20150716
  3. LYRICA [Concomitant]
     Active Substance: PREGABALIN
     Indication: Tumour pain
     Dosage: 300 PER DAY (UNITS NOT REPORTED)
     Route: 048
     Dates: start: 20141121
  4. FENTANYL [Concomitant]
     Active Substance: FENTANYL
     Indication: Tumour pain
     Dosage: 125 PER DAY (UNITS NOT REPORTED)
     Route: 048
     Dates: start: 20150429
  5. ASPIRIN [Concomitant]
     Active Substance: ASPIRIN
     Route: 048
     Dates: start: 20140923

REACTIONS (2)
  - Urinary tract infection [Recovered/Resolved]
  - Febrile neutropenia [Recovered/Resolved]

NARRATIVE: CASE EVENT DATE: 20150601
